FAERS Safety Report 13448227 (Version 1)
Quarter: 2017Q2

REPORT INFORMATION
  Report Type: Spontaneous
  Country: SE (occurrence: SE)
  Receive Date: 20170417
  Receipt Date: 20170417
  Transmission Date: 20170830
  Serious: Yes (Hospitalization)
  Sender: FDA-Public Use
  Company Number: SE-TEVA-757450ACC

PATIENT
  Age: 34 Year
  Sex: Female

DRUGS (12)
  1. NOZINAN [Concomitant]
     Active Substance: LEVOMEPROMAZINE
  2. CIRCADIN [Concomitant]
     Active Substance: MELATONIN
  3. STESOLID [Suspect]
     Active Substance: DIAZEPAM
     Dosage: 100 X 10MG
     Route: 048
     Dates: start: 20150112, end: 20150112
  4. FENURIL [Concomitant]
  5. PROPAVAN [Concomitant]
     Active Substance: PROPIOMAZINE
  6. LEVAXIN [Concomitant]
     Active Substance: LEVOTHYROXINE SODIUM
  7. IMOVANE [Suspect]
     Active Substance: ZOPICLONE
     Dosage: ABOUT 90 IMOVANE
     Route: 048
     Dates: start: 20150112, end: 20150112
  8. LYRICA [Suspect]
     Active Substance: PREGABALIN
     Dosage: ABOUT 40 PIECES OF 75 MG
     Route: 048
     Dates: start: 20150112, end: 20150112
  9. CETIRIZINE BMM PHARMA [Concomitant]
  10. THERALEN [Concomitant]
     Active Substance: TRIMEPRAZINE
  11. PROMETHAZINE [Concomitant]
     Active Substance: PROMETHAZINE\PROMETHAZINE HYDROCHLORIDE
  12. ATARAX [Concomitant]
     Active Substance: HYDROXYZINE HYDROCHLORIDE

REACTIONS (2)
  - Toxicity to various agents [Recovered/Resolved]
  - Suicide attempt [Recovered/Resolved]

NARRATIVE: CASE EVENT DATE: 20150112
